FAERS Safety Report 5368867-0 (Version None)
Quarter: 2007Q2

REPORT INFORMATION
  Report Type: 
  Country: None (occurrence: None)
  Receive Date: 20070625
  Receipt Date: 20061106
  Transmission Date: 20071010
  Serious: Yes (Hospitalization)
  Sender: FDA-Public Use
  Company Number: US-ASTRAZENECA-2006UW22474

PATIENT
  Age: 16958 Day
  Sex: Female
  Weight: 98.6 kg

DRUGS (6)
  1. ROSUVASTATIN [Suspect]
     Indication: DYSLIPIDAEMIA
     Route: 048
     Dates: start: 20060808, end: 20060913
  2. ROSUVASTATIN [Suspect]
     Route: 048
     Dates: start: 20060915
  3. ABT-335 [Suspect]
     Indication: DYSLIPIDAEMIA
     Route: 048
     Dates: start: 20060808, end: 20060913
  4. ABT-335 [Suspect]
     Route: 048
     Dates: start: 20060915
  5. IBUPROFEN [Concomitant]
     Indication: BACK PAIN
     Dates: start: 20060101
  6. AMBIEN CR [Concomitant]
     Indication: INSOMNIA
     Dates: start: 20060307

REACTIONS (1)
  - BACK PAIN [None]
